FAERS Safety Report 20676899 (Version 1)
Quarter: 2022Q2

REPORT INFORMATION
  Report Type: Other
  Country: US (occurrence: None)
  Receive Date: 20220406
  Receipt Date: 20220406
  Transmission Date: 20220720
  Serious: Yes (Hospitalization, Other)
  Sender: FDA-Public Use
  Company Number: US-ROCHE-1961194

PATIENT
  Sex: Male
  Weight: 95.068 kg

DRUGS (5)
  1. RITUXAN [Suspect]
     Active Substance: RITUXIMAB
     Indication: Multiple sclerosis
     Dosage: ONGOING: UNKNOWN
     Route: 065
  2. RITUXAN [Suspect]
     Active Substance: RITUXIMAB
     Dosage: DAY 1 AND DAY 15
     Route: 065
     Dates: start: 20170707
  3. OCREVUS [Suspect]
     Active Substance: OCRELIZUMAB
     Indication: Relapsing multiple sclerosis
     Dosage: DATE OF TREATMENT: 14/MAR/2018, 05/SEP/2018, 14/MAR/2019, 08/SEP/2019, 02/MAR/2020, 10/SEP/2020,
     Route: 065
  4. MYRBETRIQ [Concomitant]
     Active Substance: MIRABEGRON
  5. FLOMAX [Concomitant]
     Active Substance: TAMSULOSIN HYDROCHLORIDE

REACTIONS (5)
  - Disease recurrence [Unknown]
  - Sensory loss [Unknown]
  - Off label use [Unknown]
  - Pancreatitis [Unknown]
  - Anxiety [Unknown]
